FAERS Safety Report 8399776-0 (Version None)
Quarter: 2012Q1

REPORT INFORMATION
  Report Type: 
  Country: None (occurrence: None)
  Receive Date: 20120323
  Receipt Date: 20111019
  Transmission Date: 20120608
  Serious: Yes (Other)
  Sender: FDA-Public Use
  Company Number: 163-21880-11072526

PATIENT
  Age: 52 Year
  Sex: Female
  Weight: 70.7611 kg

DRUGS (3)
  1. COUMADIN [Concomitant]
  2. REVLIMID [Suspect]
     Indication: MULTIPLE MYELOMA
     Dosage: 10 MG, DAYS 1-21, PO 5 MG, DAYS 1-21, PO
     Route: 048
     Dates: start: 20110714
  3. REVLIMID [Suspect]
     Indication: MULTIPLE MYELOMA
     Dosage: 10 MG, DAYS 1-21, PO 5 MG, DAYS 1-21, PO
     Route: 048
     Dates: start: 20110222, end: 20110630

REACTIONS (1)
  - PLATELET COUNT DECREASED [None]
